FAERS Safety Report 24162023 (Version 1)
Quarter: 2024Q3

REPORT INFORMATION
  Report Type: Spontaneous
  Country: US (occurrence: US)
  Receive Date: 20240801
  Receipt Date: 20240801
  Transmission Date: 20241016
  Serious: No
  Sender: GLENMARK
  Company Number: US-GLENMARK PHARMACEUTICALS-2023GMK087848

PATIENT

DRUGS (4)
  1. MUPIROCIN [Suspect]
     Active Substance: MUPIROCIN
     Indication: Skin infection
     Dosage: UNK, USED THE PRODUCT THREE TIMES
     Route: 045
  2. MUPIROCIN [Suspect]
     Active Substance: MUPIROCIN
     Indication: Acne
  3. CODEINE [Concomitant]
     Active Substance: CODEINE
     Indication: Pain
     Dosage: UNK, (TOTAL DAILY DOSE: 90 MILLIGRAMS)
     Route: 065
  4. VITAMIN B12 [Concomitant]
     Active Substance: CYANOCOBALAMIN
     Indication: Vitamin supplementation
     Dosage: UNK
     Route: 065

REACTIONS (2)
  - Product administered at inappropriate site [Unknown]
  - Drug ineffective for unapproved indication [Unknown]
